FAERS Safety Report 4446449-2 (Version None)
Quarter: 2004Q3

REPORT INFORMATION
  Report Type: 
  Country: None (occurrence: None)
  Receive Date: 20040907
  Receipt Date: 20040823
  Transmission Date: 20050211
  Serious: Yes (Other)
  Sender: FDA-Public Use
  Company Number: 2004057630

PATIENT
  Age: 68 Year
  Sex: Female

DRUGS (6)
  1. TIKOSYN [Suspect]
     Indication: ATRIAL FIBRILLATION
     Dosage: 500 MCG (250 MCG, 2 N 1D), ORAL
     Route: 048
     Dates: start: 20040101
  2. VALSARTAN (VALSARTAN) [Concomitant]
  3. FUROSEMIDE [Concomitant]
  4. CLONIDINE [Concomitant]
  5. METOPROLOL TARTRATE [Concomitant]
  6. WARFARIN (WARFARIN) [Concomitant]

REACTIONS (3)
  - DRUG INEFFECTIVE [None]
  - EAR PAIN [None]
  - SINUSITIS [None]
